FAERS Safety Report 13238565 (Version 1)
Quarter: 2017Q1

REPORT INFORMATION
  Report Type: Spontaneous
  Country: US (occurrence: US)
  Receive Date: 20170216
  Receipt Date: 20170216
  Transmission Date: 20170428
  Serious: No
  Sender: FDA-Public Use
  Company Number: US-ACTAVIS-2016-16156

PATIENT
  Age: 80 Year
  Sex: Female
  Weight: 77 kg

DRUGS (3)
  1. LORATADINE/PSEUDOEPHEDRINE SULFATE (ACTAVIS LABORATORIES FL) [Suspect]
     Active Substance: LORATADINE\PSEUDOEPHEDRINE SULFATE
     Indication: RHINORRHOEA
     Dosage: 1 DF, SINGLE
     Route: 048
     Dates: start: 20160714, end: 20160714
  2. LORATADINE/PSEUDOEPHEDRINE SULFATE (ACTAVIS LABORATORIES FL) [Suspect]
     Active Substance: LORATADINE\PSEUDOEPHEDRINE SULFATE
     Indication: SEASONAL ALLERGY
  3. LORATADINE/PSEUDOEPHEDRINE SULFATE (ACTAVIS LABORATORIES FL) [Suspect]
     Active Substance: LORATADINE\PSEUDOEPHEDRINE SULFATE
     Indication: SINUS CONGESTION

REACTIONS (2)
  - Insomnia [Recovered/Resolved]
  - Expired product administered [Recovered/Resolved]

NARRATIVE: CASE EVENT DATE: 20160714
